FAERS Safety Report 12120776 (Version 1)
Quarter: 2016Q1

REPORT INFORMATION
  Report Type: Spontaneous
  Country: CA (occurrence: CA)
  Receive Date: 20160226
  Receipt Date: 20160226
  Transmission Date: 20160526
  Serious: Yes (Other)
  Sender: FDA-Public Use
  Company Number: CA-009507513-1602CAN011168

PATIENT
  Age: 64 Year
  Sex: Female

DRUGS (4)
  1. FLUTICASONE [Concomitant]
     Active Substance: FLUTICASONE\FLUTICASONE PROPIONATE
  2. INDAPAMIDE (+) PERINDOPRIL [Concomitant]
  3. ALBUTEROL. [Concomitant]
     Active Substance: ALBUTEROL
  4. NASONEX [Suspect]
     Active Substance: MOMETASONE FUROATE
     Indication: SEASONAL ALLERGY
     Dosage: 1 DF, 2 EVERY 1 DAY
     Route: 045

REACTIONS (3)
  - Speech disorder [Recovered/Resolved]
  - Face oedema [Recovered/Resolved]
  - Hypoaesthesia [Recovered/Resolved]
